FAERS Safety Report 6458690-8 (Version None)
Quarter: 2009Q4

REPORT INFORMATION
  Report Type: 
  Country: None (occurrence: None)
  Receive Date: 20091127
  Receipt Date: 20091117
  Transmission Date: 20100525
  Serious: Yes (Other)
  Sender: FDA-Public Use
  Company Number: US-ROCHE-615156

PATIENT
  Sex: Female
  Weight: 58.5 kg

DRUGS (6)
  1. PEG-INTERFERON A-2A (RO 25-8310) [Suspect]
     Indication: HEPATITIS C
     Dosage: FORM: PRE-FILLED SYRINGES,
     Route: 058
     Dates: start: 20080319, end: 20090415
  2. RIBAVIRIN [Suspect]
     Indication: HEPATITIS C
     Dosage: DIVIDED DOSES
     Route: 048
     Dates: start: 20080319, end: 20090415
  3. XANAX [Concomitant]
  4. PROCRIT [Concomitant]
     Indication: NEUTROPENIA
  5. PRISTIQ [Concomitant]
     Indication: DEPRESSION
     Dosage: DRUG:PRISTIQUE
  6. PROVIGIL [Concomitant]
     Indication: FATIGUE

REACTIONS (13)
  - ANAEMIA [None]
  - ANXIETY [None]
  - CARPAL TUNNEL SYNDROME [None]
  - DEPRESSION [None]
  - DISTURBANCE IN ATTENTION [None]
  - FATIGUE [None]
  - HYPOAESTHESIA [None]
  - HYPOTHYROIDISM [None]
  - INSOMNIA [None]
  - MALAISE [None]
  - PAIN [None]
  - UTERINE LEIOMYOMA [None]
  - VISION BLURRED [None]
